FAERS Safety Report 25788773 (Version 1)
Quarter: 2025Q3

REPORT INFORMATION
  Report Type: Spontaneous
  Country: IN (occurrence: IN)
  Receive Date: 20250911
  Receipt Date: 20250911
  Transmission Date: 20251021
  Serious: Yes (Hospitalization, Other)
  Sender: CIPLA
  Company Number: IN-MLMSERVICE-20250822-PI623901-00196-4

PATIENT

DRUGS (1)
  1. LEVETIRACETAM [Suspect]
     Active Substance: LEVETIRACETAM
     Indication: Seizure prophylaxis
     Dosage: 1000 MILLIGRAM, QD
     Route: 065

REACTIONS (1)
  - Psychotic symptom [Recovered/Resolved]
